FAERS Safety Report 18733256 (Version 3)
Quarter: 2021Q4

REPORT INFORMATION
  Report Type: Report from Study
  Country: CA (occurrence: CA)
  Receive Date: 20210113
  Receipt Date: 20211201
  Transmission Date: 20220303
  Serious: Yes (Hospitalization)
  Sender: FDA-Public Use
  Company Number: CA-JNJFOC-20210117066

PATIENT
  Age: 59 Year
  Sex: Male
  Weight: 77 kg

DRUGS (7)
  1. SIMPONI [Suspect]
     Active Substance: GOLIMUMAB
     Indication: Rheumatoid arthritis
     Route: 058
     Dates: start: 20200630, end: 20210705
  2. ASPIRIN [Concomitant]
     Active Substance: ASPIRIN
     Dates: start: 201101
  3. ROSUVASTATIN [Concomitant]
     Active Substance: ROSUVASTATIN
     Dates: start: 201101
  4. DEXLANSOPRAZOLE [Concomitant]
     Active Substance: DEXLANSOPRAZOLE
     Dates: start: 2008
  5. IRBESARTAN [Concomitant]
     Active Substance: IRBESARTAN
     Dates: start: 2008
  6. LATANOPROST [Concomitant]
     Active Substance: LATANOPROST
     Dates: start: 201904
  7. ERGOCALCIFEROL [Concomitant]
     Active Substance: ERGOCALCIFEROL

REACTIONS (1)
  - Pneumonia [Recovered/Resolved]

NARRATIVE: CASE EVENT DATE: 20200910
